FAERS Safety Report 9579287 (Version 1)
Quarter: 2013Q4

REPORT INFORMATION
  Report Type: Spontaneous
  Country: US (occurrence: US)
  Receive Date: 20131001
  Receipt Date: 20131001
  Transmission Date: 20140711
  Serious: No
  Sender: FDA-Public Use
  Company Number: US-AMGEN-USASP2013017360

PATIENT
  Age: 49 Year
  Sex: Male
  Weight: 72.56 kg

DRUGS (7)
  1. ENBREL [Suspect]
     Indication: RHEUMATOID ARTHRITIS
     Dosage: 50 MG/ML, QWK
     Route: 058
  2. CRESTOR [Concomitant]
     Dosage: 20 MG, UNK
  3. VERAPAMIL [Concomitant]
     Dosage: 100 MG, UNK
  4. ACIPHEX [Concomitant]
     Dosage: 20 MG, UNK
  5. ASPIRIN LOW [Concomitant]
     Dosage: 81 MG, UNK
  6. METHOTREXATE [Concomitant]
     Dosage: 2.5 MG, UNK
  7. ZOFRAN                             /00955301/ [Concomitant]
     Dosage: 4 MG, UNK

REACTIONS (1)
  - Therapeutic response decreased [Unknown]
